FAERS Safety Report 22383509 (Version 3)
Quarter: 2023Q2

REPORT INFORMATION
  Report Type: Report from Study
  Country: BR (occurrence: BR)
  Receive Date: 20230530
  Receipt Date: 20230620
  Transmission Date: 20230721
  Serious: Yes (Death, Life-Threatening, Hospitalization)
  Sender: FDA-Public Use
  Company Number: BR-JNJFOC-20230245636

PATIENT

DRUGS (3)
  1. NIRAPARIB [Suspect]
     Active Substance: NIRAPARIB
     Indication: Prostate cancer metastatic
     Dosage: 100 MG, QD, MOST RECENT DOSE 07-FEB-2023
     Route: 048
     Dates: start: 20210308
  2. ABIRATERONE ACETATE [Suspect]
     Active Substance: ABIRATERONE ACETATE
     Indication: Prostate cancer metastatic
     Dosage: 250 MG, QD (MOST RECENT DOSE  07-FEB-2023)
     Route: 048
     Dates: start: 20210308
  3. PREDNISONE [Suspect]
     Active Substance: PREDNISONE
     Indication: Prostate cancer metastatic
     Dosage: 5 MG, QD (MOST RECENT DOSE 07-FEB-2023)
     Route: 048
     Dates: start: 20210308

REACTIONS (3)
  - Haematuria [Fatal]
  - Thrombocytopenia [Not Recovered/Not Resolved]
  - Urinary incontinence [Recovered/Resolved]

NARRATIVE: CASE EVENT DATE: 20230201
